FAERS Safety Report 22172441 (Version 1)
Quarter: 2023Q2

REPORT INFORMATION
  Report Type: Spontaneous
  Country: None (occurrence: FR)
  Receive Date: 20230404
  Receipt Date: 20230404
  Transmission Date: 20230721
  Serious: Yes (Hospitalization, Other)
  Sender: FDA-Public Use
  Company Number: FR-B.Braun Medical Inc.-2139874

PATIENT
  Age: 22 Year
  Sex: Female
  Weight: 64 kg

DRUGS (2)
  1. ACETAMINOPHEN [Suspect]
     Active Substance: ACETAMINOPHEN
  2. CYAMEMAZINE [Suspect]
     Active Substance: CYAMEMAZINE

REACTIONS (5)
  - Intentional overdose [Recovered/Resolved]
  - Nausea [Recovered/Resolved]
  - Abdominal pain [Recovered/Resolved]
  - Somnolence [Recovered/Resolved]
  - Poisoning deliberate [Recovered/Resolved]
